FAERS Safety Report 25903369 (Version 1)
Quarter: 2025Q4

REPORT INFORMATION
  Report Type: Spontaneous
  Country: US (occurrence: US)
  Receive Date: 20251009
  Receipt Date: 20251009
  Transmission Date: 20260118
  Serious: No
  Sender: CB FLEET
  Company Number: US-PRESTIGE-202506-US-001754

PATIENT
  Sex: Female

DRUGS (1)
  1. MONISTAT 3 COMBINATION PACK [Suspect]
     Active Substance: MICONAZOLE NITRATE
     Indication: Dental disorder prophylaxis
     Dosage: I THOUGHT I WAS USING A SAMPLE TOOTHPASTE. I BRUSHED MY TEETH

REACTIONS (2)
  - Memory impairment [Recovered/Resolved]
  - Accidental exposure to product [None]
